FAERS Safety Report 11696881 (Version 1)
Quarter: 2015Q4

REPORT INFORMATION
  Report Type: Spontaneous
  Country: FR (occurrence: FR)
  Receive Date: 20151104
  Receipt Date: 20151104
  Transmission Date: 20160304
  Serious: Yes (Life-Threatening, Hospitalization)
  Sender: FDA-Public Use
  Company Number: FR-PFIZER INC-2015370943

PATIENT
  Age: 88 Year
  Sex: Female

DRUGS (7)
  1. XANAX [Concomitant]
     Active Substance: ALPRAZOLAM
  2. SOLU-MEDROL [Suspect]
     Active Substance: METHYLPREDNISOLONE SODIUM SUCCINATE
     Indication: LUNG DISORDER
     Dosage: 60 MG, 1X/DAY
     Route: 042
     Dates: start: 20150925, end: 20150928
  3. EBIXA [Concomitant]
     Active Substance: MEMANTINE HYDROCHLORIDE
  4. ROCEPHINE [Interacting]
     Active Substance: CEFTRIAXONE SODIUM
     Indication: LUNG DISORDER
     Dosage: 1 G, 1X/DAY
     Route: 042
     Dates: start: 20150925
  5. PREVISCAN /00789001/ [Interacting]
     Active Substance: FLUINDIONE
     Indication: THROMBOPHLEBITIS
     Dosage: 15 MG, 1X/DAY
     Route: 048
     Dates: start: 2012, end: 20150928
  6. NEOMERCAZOLE [Concomitant]
     Active Substance: CARBIMAZOLE
  7. TERCIAN /00759301/ [Concomitant]
     Active Substance: CYAMEMAZINE

REACTIONS (3)
  - Drug interaction [Recovered/Resolved]
  - Melaena [Recovered/Resolved]
  - International normalised ratio increased [Recovered/Resolved]

NARRATIVE: CASE EVENT DATE: 20150928
